FAERS Safety Report 7213125-2 (Version None)
Quarter: 2011Q1

REPORT INFORMATION
  Report Type: 
  Country: None (occurrence: None)
  Receive Date: 20110106
  Receipt Date: 20101228
  Transmission Date: 20110831
  Serious: Yes (Other)
  Sender: FDA-Public Use
  Company Number: PHHY2010US89680

PATIENT
  Sex: Female

DRUGS (2)
  1. RECLAST [Suspect]
     Dosage: UNK
     Dates: start: 20100801
  2. CORTISONE [Concomitant]

REACTIONS (8)
  - BONE PAIN [None]
  - MUSCLE SPASMS [None]
  - ASPIRATION JOINT [None]
  - ARTHRALGIA [None]
  - NEURALGIA [None]
  - PARAESTHESIA [None]
  - BURSITIS [None]
  - PAIN [None]
